FAERS Safety Report 6083208-1 (Version None)
Quarter: 2009Q1

REPORT INFORMATION
  Report Type: 
  Country: None (occurrence: None)
  Receive Date: 20090219
  Receipt Date: 20090217
  Transmission Date: 20090719
  Serious: Yes (Death, Hospitalization)
  Sender: FDA-Public Use
  Company Number: AT-JNJFOC-20090203798

PATIENT
  Sex: Female

DRUGS (10)
  1. RISPERDAL CONSTA [Suspect]
     Route: 030
  2. RISPERDAL CONSTA [Suspect]
     Route: 030
  3. RISPERDAL CONSTA [Suspect]
     Route: 030
  4. RISPERDAL CONSTA [Suspect]
     Indication: SCHIZOAFFECTIVE DISORDER
     Route: 030
  5. ZYPREXA [Concomitant]
     Indication: SLEEP DISORDER
     Dosage: 0-0-1
     Route: 048
  6. CIPRALEX [Concomitant]
     Route: 065
  7. CITALOPRAM HYDROBROMIDE [Concomitant]
     Route: 065
  8. DOMINAL FORTE [Concomitant]
     Indication: SLEEP DISORDER
     Route: 048
  9. CONCOR [Concomitant]
     Dosage: 1-1-0
     Route: 065
  10. LEVOLAC [Concomitant]
     Dosage: 1-0-0
     Route: 065

REACTIONS (3)
  - BRONCHITIS [None]
  - FATIGUE [None]
  - SUDDEN DEATH [None]
